FAERS Safety Report 5519749-2 (Version None)
Quarter: 2007Q4

REPORT INFORMATION
  Report Type: 
  Country: None (occurrence: None)
  Receive Date: 20071116
  Receipt Date: 20070803
  Transmission Date: 20080405
  Serious: No
  Sender: FDA-Public Use
  Company Number: A0668113A

PATIENT
  Age: 71 Year
  Sex: Male

DRUGS (4)
  1. COREG CR [Suspect]
     Dosage: 10MG PER DAY
     Route: 048
     Dates: start: 20070601
  2. PEPTO BISMOL [Concomitant]
  3. LISINOPRIL [Concomitant]
  4. DIGITEK [Concomitant]

REACTIONS (1)
  - ABDOMINAL PAIN UPPER [None]
